FAERS Safety Report 5017911-9 (Version None)
Quarter: 2006Q2

REPORT INFORMATION
  Report Type: 
  Country: None (occurrence: None)
  Receive Date: 20060605
  Receipt Date: 20060526
  Transmission Date: 20061013
  Serious: Yes (Hospitalization)
  Sender: FDA-Public Use
  Company Number: 2006UW10336

PATIENT
  Age: 62 Year
  Sex: Male
  Weight: 75.7 kg

DRUGS (7)
  1. TOPROL-XL [Suspect]
     Indication: CARDIAC FAILURE CONGESTIVE
     Route: 048
  2. TOPROL-XL [Suspect]
     Route: 048
     Dates: start: 20060423
  3. TOPROL-XL [Suspect]
     Route: 048
  4. PRAVACHOL [Concomitant]
  5. THYROID TAB [Concomitant]
  6. PROTONIX [Concomitant]
  7. LASIX [Concomitant]

REACTIONS (6)
  - ASTHENIA [None]
  - CARDIAC FAILURE [None]
  - FATIGUE [None]
  - INFLUENZA [None]
  - INSOMNIA [None]
  - STOMACH DISCOMFORT [None]
